FAERS Safety Report 8190272-2 (Version None)
Quarter: 2012Q1

REPORT INFORMATION
  Report Type: 
  Country: None (occurrence: None)
  Receive Date: 20120305
  Receipt Date: 20120220
  Transmission Date: 20120608
  Serious: Yes (Other)
  Sender: FDA-Public Use
  Company Number: 2012P1007721

PATIENT
  Age: 74 Year
  Sex: Male

DRUGS (1)
  1. METOPROLOL (NO PREF. NAME) [Suspect]
     Indication: PALPITATIONS

REACTIONS (1)
  - LICHENOID KERATOSIS [None]
